FAERS Safety Report 11098262 (Version 2)
Quarter: 2015Q2

REPORT INFORMATION
  Report Type: Spontaneous
  Country: US (occurrence: US)
  Receive Date: 20150507
  Receipt Date: 20150519
  Transmission Date: 20150821
  Serious: Yes (Hospitalization, Other)
  Sender: FDA-Public Use
  Company Number: US-INCYTE CORPORATION-2015IN001435

PATIENT
  Age: 82 Year
  Sex: Female

DRUGS (4)
  1. CALCIUM [Concomitant]
     Active Substance: CALCIUM
  2. PREDNISONE. [Concomitant]
     Active Substance: PREDNISONE
  3. JAKAFI [Suspect]
     Active Substance: RUXOLITINIB
     Indication: POLYCYTHAEMIA VERA
     Dosage: 10 MG, BID
     Route: 048
     Dates: start: 20150121
  4. VITAMIN D                          /00107901/ [Concomitant]
     Active Substance: ERGOCALCIFEROL

REACTIONS (12)
  - Bronchiectasis [Unknown]
  - Cardiomegaly [Unknown]
  - Lobar pneumonia [Unknown]
  - Splenic infarction [Unknown]
  - Laryngitis [Unknown]
  - Diverticulitis [Unknown]
  - Gastrointestinal disorder [Unknown]
  - Bone density abnormal [Unknown]
  - Hiatus hernia [Unknown]
  - Thrombosis [Unknown]
  - Cardiac aneurysm [Unknown]
  - Cholelithiasis [Unknown]

NARRATIVE: CASE EVENT DATE: 20140902
